FAERS Safety Report 4290240-7 (Version None)
Quarter: 2004Q1

REPORT INFORMATION
  Report Type: 
  Country: None (occurrence: None)
  Receive Date: 20040210
  Receipt Date: 20030811
  Transmission Date: 20041129
  Serious: Yes (Hospitalization, Other)
  Sender: FDA-Public Use
  Company Number: PHNU2003DE03032

PATIENT
  Sex: Male

DRUGS (5)
  1. CONCERTA [Concomitant]
     Indication: ATTENTION DEFICIT/HYPERACTIVITY DISORDER
     Dosage: 18MG/DAY
     Route: 048
     Dates: start: 20030101
  2. TRUXAL [Concomitant]
     Dosage: 75 MG/DAY
     Route: 048
  3. ATOSIL [Concomitant]
     Dosage: 75 MG/DAY
     Route: 048
  4. TEGRETOL [Concomitant]
     Dosage: 1600 MG/DAY
     Dates: start: 20030101
  5. RITALIN [Suspect]
     Indication: ATTENTION DEFICIT/HYPERACTIVITY DISORDER
     Dosage: UNKNOWN
     Route: 048
     Dates: start: 20020101, end: 20030101

REACTIONS (22)
  - AGGRESSION [None]
  - ANGER [None]
  - ANXIETY [None]
  - BLISTER [None]
  - CARDIOVASCULAR DISORDER [None]
  - CHEST PAIN [None]
  - DEPRESSION [None]
  - DRUG DEPENDENCE [None]
  - DRUG TOXICITY [None]
  - DRUG WITHDRAWAL SYNDROME [None]
  - ERECTILE DYSFUNCTION [None]
  - FATIGUE [None]
  - FEELING ABNORMAL [None]
  - HEART RATE INCREASED [None]
  - LIBIDO INCREASED [None]
  - NERVOUSNESS [None]
  - NIGHTMARE [None]
  - RASH [None]
  - RENAL PAIN [None]
  - RESTLESSNESS [None]
  - SLEEP DISORDER [None]
  - SUICIDE ATTEMPT [None]
